FAERS Safety Report 4984303-8 (Version None)
Quarter: 2006Q2

REPORT INFORMATION
  Report Type: 
  Country: None (occurrence: None)
  Receive Date: 20060420
  Receipt Date: 20060405
  Transmission Date: 20061013
  Serious: Yes (Hospitalization)
  Sender: FDA-Public Use
  Company Number: GXKR2006ES01955

PATIENT
  Age: 89 Year
  Sex: Female

DRUGS (2)
  1. BISOPROLOL (NGX) (BISOPROLOL) [Suspect]
  2. LORAZEPAM [Suspect]

REACTIONS (6)
  - BRADYCARDIA [None]
  - HYPOTENSION [None]
  - INTENTIONAL OVERDOSE [None]
  - LOSS OF CONSCIOUSNESS [None]
  - OLIGURIA [None]
  - SUICIDE ATTEMPT [None]
